FAERS Safety Report 7433533-4 (Version None)
Quarter: 2011Q2

REPORT INFORMATION
  Report Type: 
  Country: None (occurrence: None)
  Receive Date: 20110422
  Receipt Date: 20110419
  Transmission Date: 20111010
  Serious: No
  Sender: FDA-Public Use
  Company Number: US-B.I. PHARMACEUTICALS,INC./RIDGEFIELD-2011-BP-11243BP

PATIENT
  Sex: Male

DRUGS (8)
  1. PRADAXA [Suspect]
     Indication: ATRIAL FIBRILLATION
     Dosage: 300 MG
     Route: 048
     Dates: start: 20110305
  2. AMIODARONE [Concomitant]
     Indication: ATRIAL FIBRILLATION
     Dosage: 200 MG
     Route: 048
  3. XOPENEX [Concomitant]
     Route: 055
  4. FLOVENT [Concomitant]
     Indication: ASTHMA
     Route: 055
  5. LOVASTATIN [Concomitant]
     Dosage: 40 MG
     Route: 048
  6. ENALAPRIL [Concomitant]
     Dosage: 10 MG
     Route: 048
  7. ASPIRIN [Concomitant]
     Indication: BLOOD THROMBIN
     Dosage: 81 MG
     Route: 048
  8. METOPROLOL XR [Concomitant]
     Indication: ATRIAL FIBRILLATION
     Dosage: 50 MG
     Route: 048

REACTIONS (1)
  - ASTHMA [None]
